FAERS Safety Report 20038837 (Version 1)
Quarter: 2021Q4

REPORT INFORMATION
  Report Type: Spontaneous
  Country: DE (occurrence: None)
  Receive Date: 20211105
  Receipt Date: 20211105
  Transmission Date: 20220304
  Serious: Yes (Other)
  Sender: FDA-Public Use
  Company Number: 2021A790288

PATIENT
  Age: 60 Year
  Sex: Female

DRUGS (3)
  1. ROSUVASTATIN [Suspect]
     Active Substance: ROSUVASTATIN
     Route: 048
  2. EZETIMIBE [Concomitant]
     Active Substance: EZETIMIBE
     Route: 065
  3. ALIROCUMAB [Concomitant]
     Active Substance: ALIROCUMAB
     Route: 065

REACTIONS (1)
  - Bone density decreased [Unknown]
